FAERS Safety Report 6657419-8 (Version None)
Quarter: 2010Q1

REPORT INFORMATION
  Report Type: 
  Country: None (occurrence: None)
  Receive Date: 20100330
  Receipt Date: 20100318
  Transmission Date: 20100710
  Serious: Yes (Other)
  Sender: FDA-Public Use
  Company Number: CZ-PFIZER INC-2010030851

PATIENT
  Sex: Female

DRUGS (4)
  1. DIFLUCAN [Suspect]
     Indication: CANDIDIASIS
     Dosage: 50 MG, 2X/DAY
     Route: 048
     Dates: start: 20100226
  2. SIMEPAR [Concomitant]
  3. PARALEN [Concomitant]
  4. SUMAMED [Concomitant]

REACTIONS (5)
  - COAGULOPATHY [None]
  - CONDITION AGGRAVATED [None]
  - DISEASE PROGRESSION [None]
  - DRUG INEFFECTIVE [None]
  - OCULAR ICTERUS [None]
